FAERS Safety Report 19205767 (Version 1)
Quarter: 2021Q2

REPORT INFORMATION
  Report Type: Spontaneous
  Country: US (occurrence: US)
  Receive Date: 20210503
  Receipt Date: 20210503
  Transmission Date: 20210717
  Serious: No
  Sender: FDA-Public Use
  Company Number: US-FARMAPROD-202102-0273

PATIENT
  Age: 48 Year
  Sex: Male

DRUGS (11)
  1. OXERVATE [Suspect]
     Active Substance: CENEGERMIN-BKBJ
     Indication: HERPES OPHTHALMIC
     Route: 047
     Dates: start: 20210219, end: 20210221
  2. OFLOXACIN. [Concomitant]
     Active Substance: OFLOXACIN
     Route: 047
  3. FAMCICLOVIR. [Concomitant]
     Active Substance: FAMCICLOVIR
  4. GABAPENTIN. [Concomitant]
     Active Substance: GABAPENTIN
     Indication: EYE PAIN
  5. LUTEIN [Concomitant]
     Active Substance: LUTEIN
  6. OXERVATE [Suspect]
     Active Substance: CENEGERMIN-BKBJ
     Indication: NEUROTROPHIC KERATOPATHY
  7. AMLODIPINE BESYLATE/BENAZEPRIL [Concomitant]
  8. BIOTIN [Concomitant]
     Active Substance: BIOTIN
  9. PREDNISOLONE. [Concomitant]
     Active Substance: PREDNISOLONE
     Route: 047
  10. TYLENOL [Concomitant]
     Active Substance: ACETAMINOPHEN
     Indication: HEADACHE
  11. VITAMIN D3/ALOE [Concomitant]
     Dosage: 120 MG?1000 IU

REACTIONS (3)
  - Eye irritation [Recovered/Resolved]
  - Product administration error [Unknown]
  - Headache [Recovered/Resolved]

NARRATIVE: CASE EVENT DATE: 20210219
